FAERS Safety Report 21812543 (Version 5)
Quarter: 2023Q2

REPORT INFORMATION
  Report Type: Report from Study
  Country: DE (occurrence: DE)
  Receive Date: 20230103
  Receipt Date: 20230628
  Transmission Date: 20230722
  Serious: Yes (Other)
  Sender: FDA-Public Use
  Company Number: DE-ROCHE-2721547

PATIENT
  Age: 38 Year
  Sex: Female

DRUGS (20)
  1. BOTOX [Suspect]
     Active Substance: ONABOTULINUMTOXINA
     Indication: Product used for unknown indication
     Dosage: TIME INTERVAL: AS NECESSARY: DOSE DESC: UNK, SINGLE
  2. OCREVUS [Suspect]
     Active Substance: OCRELIZUMAB
     Indication: Relapsing-remitting multiple sclerosis
     Route: 042
     Dates: start: 20210510
  3. OCREVUS [Suspect]
     Active Substance: OCRELIZUMAB
     Indication: Relapsing-remitting multiple sclerosis
     Route: 042
     Dates: start: 20201123
  4. OCREVUS [Suspect]
     Active Substance: OCRELIZUMAB
     Indication: Relapsing-remitting multiple sclerosis
     Dosage: 600 MG 174 DAYS
     Route: 042
     Dates: start: 20201109
  5. COMIRNATY [Suspect]
     Active Substance: TOZINAMERAN
     Indication: COVID-19 prophylaxis
     Dosage: TIME INTERVAL: AS NECESSARY: DOSE DESC: SECOND VACCINATION
     Dates: start: 20210811, end: 20210811
  6. COMIRNATY [Suspect]
     Active Substance: TOZINAMERAN
     Indication: COVID-19 prophylaxis
     Dosage: TIME INTERVAL: AS NECESSARY: DOSE DESC: FIRST VACCINATION
     Dates: start: 20210714, end: 20210714
  7. INFLUENZA VIRUS VACCINE [Suspect]
     Active Substance: INFLUENZA VIRUS VACCINE
     Indication: Product used for unknown indication
     Dosage: TIME INTERVAL: AS NECESSARY: DOSE DESC: UNK, SINGLE
     Dates: start: 20210211, end: 20210211
  8. VENLAFAXINE [Concomitant]
     Active Substance: VENLAFAXINE HYDROCHLORIDE
     Indication: Product used for unknown indication
     Dosage: DAILY DOSE: 75.0 MG
  9. CITALOPRAM [Concomitant]
     Active Substance: CITALOPRAM HYDROBROMIDE
     Indication: Product used for unknown indication
  10. VITAMIN D3 [Concomitant]
     Active Substance: CHOLECALCIFEROL
     Indication: Product used for unknown indication
     Dosage: DAILY DOSE: 2000.0 UNITS
  11. FRANKINCENSE [Concomitant]
     Indication: Product used for unknown indication
     Dosage: DAILY DOSE: 2.0 DF
  12. FRANKINCENSE [Concomitant]
     Indication: Product used for unknown indication
  13. RUBAX [Concomitant]
     Indication: Product used for unknown indication
  14. SAB SIMPLEX [SIMETICONE] [Concomitant]
     Indication: Product used for unknown indication
     Dosage: DAILY DOSE: 240.0 MG
  15. NAPROXEN [Concomitant]
     Active Substance: NAPROXEN
     Indication: Product used for unknown indication
  16. POLYETHYLENE GLYCOLS [Concomitant]
     Active Substance: POLYETHYLENE GLYCOLS
     Indication: Product used for unknown indication
  17. DALFAMPRIDINE [Concomitant]
     Active Substance: DALFAMPRIDINE
     Indication: Product used for unknown indication
     Dosage: DAILY DOSE: 2.0 DF
  18. NABIXIMOLS [Concomitant]
     Active Substance: NABIXIMOLS
     Indication: Product used for unknown indication
  19. BACLOFEN [Concomitant]
     Active Substance: BACLOFEN
     Indication: Product used for unknown indication
     Dosage: DOSE DESC: UNK, QD
  20. INCENSE [Concomitant]
     Indication: Product used for unknown indication
     Dosage: DAILY DOSE: 4.0 DF

REACTIONS (25)
  - Diplegia [Recovered/Resolved]
  - Magnetic resonance imaging spinal abnormal [Recovered/Resolved]
  - Blister [Recovered/Resolved]
  - Noninfective gingivitis [Recovered/Resolved]
  - Nasopharyngitis [Recovered/Resolved]
  - Bone contusion [Unknown]
  - Chest pain [Recovered/Resolved]
  - Vaccination failure [Not Recovered/Not Resolved]
  - Immunosuppression [Not Recovered/Not Resolved]
  - COVID-19 [Not Recovered/Not Resolved]
  - Fall [Unknown]
  - Chills [Recovered/Resolved]
  - Vomiting [Recovered/Resolved]
  - Abdominal pain upper [Recovered/Resolved]
  - Fatigue [Not Recovered/Not Resolved]
  - Dizziness [Recovered/Resolved]
  - Influenza like illness [Recovered/Resolved]
  - Musculoskeletal stiffness [Recovered/Resolved]
  - Nausea [Recovered/Resolved]
  - Asthenia [Recovered/Resolved]
  - Diarrhoea [Recovered/Resolved]
  - Muscular weakness [Not Recovered/Not Resolved]
  - Skin abrasion [Recovered/Resolved]
  - Gait disturbance [Not Recovered/Not Resolved]
  - Vomiting [Recovered/Resolved]

NARRATIVE: CASE EVENT DATE: 20201109
